FAERS Safety Report 6014266-8 (Version None)
Quarter: 2008Q4

REPORT INFORMATION
  Report Type: 
  Country: None (occurrence: None)
  Receive Date: 20081219
  Receipt Date: 20080313
  Transmission Date: 20090506
  Serious: No
  Sender: FDA-Public Use
  Company Number: A0715269A

PATIENT
  Age: 86 Year
  Sex: Male

DRUGS (4)
  1. AVODART [Suspect]
     Indication: BENIGN PROSTATIC HYPERPLASIA
     Dosage: 5CAP ALTERNATE DAYS
     Route: 048
  2. METOPROLOL TARTRATE [Concomitant]
  3. ASPIRIN [Concomitant]
  4. VITAMIN [Concomitant]

REACTIONS (4)
  - BREAST ENLARGEMENT [None]
  - BREAST PAIN [None]
  - BREAST TENDERNESS [None]
  - WHITE BLOOD CELL COUNT DECREASED [None]
